FAERS Safety Report 8596084-X (Version None)
Quarter: 2012Q3

REPORT INFORMATION
  Report Type: 
  Country: None (occurrence: None)
  Receive Date: 20120801
  Receipt Date: 20120718
  Transmission Date: 20120928
  Serious: Yes (Hospitalization)
  Sender: FDA-Public Use
  Company Number: 2012-002640

PATIENT
  Age: 77 Year
  Sex: Male

DRUGS (2)
  1. PREDONINE 1000162011 (PREDNISOLONE) [Concomitant]
  2. BENEL (RISEDRONATE SODIUM) TABLET, 2.5MG [Suspect]
     Indication: OSTEOPOROSIS
     Dosage: 2.5 MG DAILY, ORAL
     Route: 048

REACTIONS (6)
  - ATYPICAL FEMUR FRACTURE [None]
  - BONE PAIN [None]
  - GAIT DISTURBANCE [None]
  - EXOSTOSIS [None]
  - LIGAMENT SPRAIN [None]
  - FALL [None]
